FAERS Safety Report 6875108-1 (Version None)
Quarter: 2010Q3

REPORT INFORMATION
  Report Type: 
  Country: None (occurrence: None)
  Receive Date: 20100727
  Receipt Date: 20080811
  Transmission Date: 20110219
  Serious: Yes (Hospitalization, Other)
  Sender: FDA-Public Use
  Company Number: US-PFIZER INC-2006140338

PATIENT
  Sex: Male
  Weight: 128.4 kg

DRUGS (1)
  1. CELEBREX [Suspect]
     Indication: OSTEOARTHRITIS
     Dates: start: 19990628, end: 19990706

REACTIONS (1)
  - MYOCARDIAL INFARCTION [None]
